FAERS Safety Report 16172277 (Version 2)
Quarter: 2019Q2

REPORT INFORMATION
  Report Type: Spontaneous
  Country: US (occurrence: US)
  Receive Date: 20190409
  Receipt Date: 20190628
  Transmission Date: 20190711
  Serious: Yes (Hospitalization, Other)
  Sender: FDA-Public Use
  Company Number: US-009507513-1904USA003188

PATIENT
  Age: 38 Year
  Sex: Male

DRUGS (2)
  1. JANUVIA [Suspect]
     Active Substance: SITAGLIPTIN PHOSPHATE
     Indication: TYPE 1 DIABETES MELLITUS
     Dosage: UNK
     Route: 048
  2. INSULIN [Concomitant]
     Active Substance: INSULIN NOS
     Dosage: UNK

REACTIONS (3)
  - Pancreatitis acute [Unknown]
  - Euglycaemic diabetic ketoacidosis [Unknown]
  - Off label use [Unknown]
